FAERS Safety Report 12417430 (Version 1)
Quarter: 2016Q2

REPORT INFORMATION
  Report Type: Report from Study
  Country: US (occurrence: US)
  Receive Date: 20160530
  Receipt Date: 20160530
  Transmission Date: 20160815
  Serious: Yes (Hospitalization, Other)
  Sender: FDA-Public Use
  Company Number: US-JNJFOC-20140205129

PATIENT
  Sex: Female
  Weight: 65.77 kg

DRUGS (5)
  1. SYNTHROID [Suspect]
     Active Substance: LEVOTHYROXINE SODIUM
     Indication: PRODUCT USED FOR UNKNOWN INDICATION
     Route: 048
     Dates: start: 2013, end: 2013
  2. GLIMEPIRIDE. [Concomitant]
     Active Substance: GLIMEPIRIDE
     Route: 065
  3. REMICADE [Suspect]
     Active Substance: INFLIXIMAB
     Indication: ANKYLOSING SPONDYLITIS
     Dosage: LAST INFUSION
     Route: 042
     Dates: start: 201312, end: 201312
  4. SYNTHROID [Suspect]
     Active Substance: LEVOTHYROXINE SODIUM
     Indication: PRODUCT USED FOR UNKNOWN INDICATION
     Dosage: 75 MG EVERY ALTERNATE DAY WITH 50MG EVERY OTHER DAY
     Route: 048
     Dates: start: 2013
  5. BYSTOLIC [Concomitant]
     Active Substance: NEBIVOLOL HYDROCHLORIDE
     Route: 065

REACTIONS (10)
  - Thrombosis [Recovered/Resolved]
  - Musculoskeletal disorder [Unknown]
  - Spinal column stenosis [Unknown]
  - Spinal cord neoplasm [Unknown]
  - Neuropathy peripheral [Not Recovered/Not Resolved]
  - Kidney infection [Recovered/Resolved]
  - Nerve injury [Unknown]
  - Adverse event [Recovered/Resolved]
  - Back disorder [Unknown]
  - Infusion related reaction [Recovered/Resolved]

NARRATIVE: CASE EVENT DATE: 2013
